FAERS Safety Report 4655556-0 (Version None)
Quarter: 2005Q2

REPORT INFORMATION
  Report Type: 
  Country: None (occurrence: None)
  Receive Date: 20050505
  Receipt Date: 20050425
  Transmission Date: 20051028
  Serious: Yes (Hospitalization)
  Sender: FDA-Public Use
  Company Number: 2005066537

PATIENT
  Age: 91 Year
  Sex: Female
  Weight: 48.9885 kg

DRUGS (5)
  1. DETROL LA [Suspect]
     Indication: POLLAKIURIA
     Dosage: ORAL
     Route: 048
     Dates: start: 20020101
  2. ASPIRIN [Concomitant]
  3. PROPRANOLOL [Concomitant]
  4. CALCIUM (CALCIUM) [Concomitant]
  5. VITAMINS (VITAMINS) [Concomitant]

REACTIONS (4)
  - DRUG INEFFECTIVE [None]
  - FALL [None]
  - JOINT EFFUSION [None]
  - THROMBOSIS [None]
